FAERS Safety Report 7707072-7 (Version None)
Quarter: 2011Q3

REPORT INFORMATION
  Report Type: 
  Country: None (occurrence: None)
  Receive Date: 20110824
  Receipt Date: 20110818
  Transmission Date: 20111222
  Serious: Yes (Hospitalization, Other)
  Sender: FDA-Public Use
  Company Number: US-PFIZER INC-2007015384

PATIENT
  Sex: Male

DRUGS (6)
  1. NEURONTIN [Suspect]
     Dosage: 300 MG, UNK
     Route: 048
     Dates: start: 20040226, end: 20040702
  2. TOPROL-XL [Concomitant]
     Dosage: UNK
  3. NEURONTIN [Suspect]
     Indication: PAIN
     Dosage: 100 MG
     Dates: start: 20040201
  4. ALLOPURINOL [Concomitant]
     Dosage: UNK
     Route: 048
  5. ACETYLSALICYLIC ACID [Concomitant]
     Dosage: UNK
  6. WARFARIN [Concomitant]
     Dosage: UNK

REACTIONS (2)
  - SUICIDE ATTEMPT [None]
  - DRUG INEFFECTIVE [None]
